FAERS Safety Report 7076579-0 (Version None)
Quarter: 2010Q4

REPORT INFORMATION
  Report Type: 
  Country: None (occurrence: None)
  Receive Date: 20101101
  Receipt Date: 20101020
  Transmission Date: 20110411
  Serious: Yes (Other)
  Sender: FDA-Public Use
  Company Number: JP-PFIZER INC-2010127793

PATIENT
  Age: 70 Year
  Sex: Male

DRUGS (3)
  1. XALATAN [Suspect]
     Indication: OCULAR HYPERTENSION
     Dosage: ONE DROP, 1X/DAY
     Route: 047
     Dates: start: 20101004, end: 20100101
  2. CARTEOLOL HYDROCHLORIDE [Concomitant]
     Indication: OCULAR HYPERTENSION
     Dosage: 1 GTT, 2X/DAY
     Route: 047
     Dates: start: 20101004, end: 20101015
  3. AZOPT [Concomitant]
     Indication: OCULAR HYPERTENSION
     Dosage: 1 GTT, 2X/DAY
     Route: 047
     Dates: start: 20101004, end: 20101015

REACTIONS (2)
  - DIABETIC RETINOPATHY [None]
  - VISION BLURRED [None]
